FAERS Safety Report 14671471 (Version 4)
Quarter: 2018Q3

REPORT INFORMATION
  Report Type: Report from Study
  Country: AU (occurrence: AU)
  Receive Date: 20180323
  Receipt Date: 20180820
  Transmission Date: 20181010
  Serious: Yes (Hospitalization)
  Sender: FDA-Public Use
  Company Number: AU-ROCHE-2087836

PATIENT
  Age: 66 Year
  Sex: Female
  Weight: 70 kg

DRUGS (13)
  1. PHENERGAN [Concomitant]
     Active Substance: PROMETHAZINE HYDROCHLORIDE
     Indication: BACK PAIN
     Route: 065
     Dates: start: 20180219, end: 20180219
  2. TAPENTADOL [Concomitant]
     Active Substance: TAPENTADOL
     Indication: PAIN
  3. PHENERGAN [Concomitant]
     Active Substance: PROMETHAZINE HYDROCHLORIDE
     Indication: MALAISE
  4. CARBOPLATIN. [Suspect]
     Active Substance: CARBOPLATIN
     Indication: OVARIAN CANCER
     Dosage: ON 19/FEB/2018, HE RECEIVED THE LAST DOSE PRIOR TO EVENT
     Route: 042
     Dates: start: 20180219
  5. OMEPRAZOLE. [Concomitant]
     Active Substance: OMEPRAZOLE
     Indication: GASTROOESOPHAGEAL REFLUX DISEASE
     Route: 065
     Dates: start: 20180117
  6. PARACETAMOL [Concomitant]
     Active Substance: ACETAMINOPHEN
     Indication: PAIN
     Route: 065
     Dates: start: 2016
  7. ATEZOLIZUMAB. [Suspect]
     Active Substance: ATEZOLIZUMAB
     Indication: OVARIAN CANCER
     Dosage: LAST DOSE PRIOR TO EVENT ON 19 FEB 2018
     Route: 042
     Dates: start: 20180219
  8. HYDROCORTISONE. [Concomitant]
     Active Substance: HYDROCORTISONE
     Indication: BACK PAIN
     Route: 042
     Dates: start: 20180219, end: 20180219
  9. HYDROCORTISONE. [Concomitant]
     Active Substance: HYDROCORTISONE
     Indication: CHEST DISCOMFORT
     Route: 042
     Dates: start: 20180321, end: 20180321
  10. HYDROCORTISONE. [Concomitant]
     Active Substance: HYDROCORTISONE
     Indication: MALAISE
  11. PACLITAXEL. [Suspect]
     Active Substance: PACLITAXEL
     Indication: OVARIAN CANCER
     Dosage: ON 19/FEB/2018, HE RECEIVED THE LAST DOSE PRIOR TO EVENT
     Route: 042
     Dates: start: 20180219
  12. CLEXANE [Concomitant]
     Active Substance: ENOXAPARIN SODIUM
     Route: 065
     Dates: end: 20180116
  13. PHENERGAN [Concomitant]
     Active Substance: PROMETHAZINE HYDROCHLORIDE
     Indication: CHEST DISCOMFORT
     Route: 065
     Dates: start: 20180321, end: 20180321

REACTIONS (1)
  - Febrile neutropenia [Recovered/Resolved]

NARRATIVE: CASE EVENT DATE: 20180304
